FAERS Safety Report 5633785-7 (Version None)
Quarter: 2008Q1

REPORT INFORMATION
  Report Type: 
  Country: None (occurrence: None)
  Receive Date: 20080219
  Receipt Date: 20080205
  Transmission Date: 20080703
  Serious: Yes (Other)
  Sender: FDA-Public Use
  Company Number: 2008AP000253

PATIENT
  Age: 38 Year
  Sex: Female

DRUGS (7)
  1. PAROXETINE HCL [Suspect]
     Dosage: 30 MG; QD, 20 MG; QD, 30 MG; QD, 20 MG; QD, 20 MG; QOD, 20 MG; QD, 30 MG; QD
     Dates: start: 19970605
  2. PAROXETINE HCL [Suspect]
     Dosage: 30 MG; QD, 20 MG; QD, 30 MG; QD, 20 MG; QD, 20 MG; QOD, 20 MG; QD, 30 MG; QD
     Dates: start: 19970605
  3. PAROXETINE HCL [Suspect]
     Dosage: 30 MG; QD, 20 MG; QD, 30 MG; QD, 20 MG; QD, 20 MG; QOD, 20 MG; QD, 30 MG; QD
     Dates: start: 19980120
  4. PAROXETINE HCL [Suspect]
     Dosage: 30 MG; QD, 20 MG; QD, 30 MG; QD, 20 MG; QD, 20 MG; QOD, 20 MG; QD, 30 MG; QD
     Dates: start: 19980302
  5. PAROXETINE HCL [Suspect]
     Dosage: 30 MG; QD, 20 MG; QD, 30 MG; QD, 20 MG; QD, 20 MG; QOD, 20 MG; QD, 30 MG; QD
     Dates: start: 19980713
  6. PAROXETINE HCL [Suspect]
     Dosage: 30 MG; QD, 20 MG; QD, 30 MG; QD, 20 MG; QD, 20 MG; QOD, 20 MG; QD, 30 MG; QD
     Dates: start: 19981214
  7. PAROXETINE HCL [Suspect]
     Dosage: 30 MG; QD, 20 MG; QD, 30 MG; QD, 20 MG; QD, 20 MG; QOD, 20 MG; QD, 30 MG; QD
     Dates: start: 19990112

REACTIONS (2)
  - DRUG WITHDRAWAL SYNDROME [None]
  - SUICIDAL IDEATION [None]
